FAERS Safety Report 23036548 (Version 1)
Quarter: 2023Q4

REPORT INFORMATION
  Report Type: Spontaneous
  Country: US (occurrence: US)
  Receive Date: 20231006
  Receipt Date: 20231006
  Transmission Date: 20240110
  Serious: Yes (Other)
  Sender: FDA-Public Use
  Company Number: US-AMGEN-USASP2023176442

PATIENT

DRUGS (1)
  1. AIMOVIG [Suspect]
     Active Substance: ERENUMAB-AOOE
     Indication: Product used for unknown indication
     Dosage: UNK
     Route: 065

REACTIONS (7)
  - Deafness [Unknown]
  - Brain fog [Unknown]
  - Vitreous floaters [Unknown]
  - Photopsia [Unknown]
  - Tinnitus [Unknown]
  - Vertigo [Unknown]
  - Adverse event [Unknown]
